FAERS Safety Report 5035426-9 (Version None)
Quarter: 2006Q2

REPORT INFORMATION
  Report Type: 
  Country: None (occurrence: None)
  Receive Date: 20060526
  Receipt Date: 20060215
  Transmission Date: 20061013
  Serious: No
  Sender: FDA-Public Use
  Company Number: FABR-11408

PATIENT
  Age: 23 Year
  Sex: Male
  Weight: 91 kg

DRUGS (3)
  1. FABRAZYME [Suspect]
     Indication: FABRY'S DISEASE
     Dosage: 90 MG Q2WKS IV
     Route: 042
     Dates: start: 20050426
  2. BENADRYL [Concomitant]
  3. ACETAMINOPHEN [Concomitant]

REACTIONS (2)
  - FATIGUE [None]
  - PARAESTHESIA [None]
